FAERS Safety Report 10160378 (Version 1)
Quarter: 2014Q2

REPORT INFORMATION
  Report Type: Spontaneous
  Country: US (occurrence: US)
  Receive Date: 20140508
  Receipt Date: 20140508
  Transmission Date: 20141212
  Serious: Yes (Other)
  Sender: FDA-Public Use
  Company Number: US-ROXANE LABORATORIES, INC.-2014-RO-00711RO

PATIENT
  Age: 55 Year
  Sex: Male

DRUGS (2)
  1. ANASTROZOLE [Suspect]
     Indication: OESTRADIOL INCREASED
     Dosage: 1 MG
     Route: 065
  2. ANDROGEL [Suspect]
     Indication: SEXUAL DYSFUNCTION
     Dosage: 50 MG
     Route: 065

REACTIONS (1)
  - Osteonecrosis of jaw [Recovered/Resolved]
